FAERS Safety Report 4316247-9 (Version None)
Quarter: 2004Q1

REPORT INFORMATION
  Report Type: 
  Country: None (occurrence: None)
  Receive Date: 20040312
  Receipt Date: 20040304
  Transmission Date: 20041129
  Serious: Yes (Hospitalization)
  Sender: FDA-Public Use
  Company Number: FR-ROCHE-360637

PATIENT
  Age: 54 Year
  Sex: Female
  Weight: 62 kg

DRUGS (7)
  1. PEG-INTERFERON ALFA 2A (RO 25-8310) [Suspect]
     Route: 058
     Dates: start: 20031118, end: 20040227
  2. RIBAVIRIN [Suspect]
     Route: 048
     Dates: start: 20031118, end: 20040227
  3. NEORAL [Concomitant]
     Route: 048
     Dates: start: 20021115, end: 20040227
  4. MOTILIUM [Concomitant]
     Route: 048
     Dates: start: 20040123
  5. AMLOR [Concomitant]
     Route: 048
     Dates: start: 20040220
  6. TRIATEC [Concomitant]
     Route: 048
     Dates: start: 20030505
  7. UNIDENTIFIED [Concomitant]
     Dosage: DRUG REPORTED AS GLUTER
     Route: 048

REACTIONS (2)
  - CHOLESTASIS [None]
  - TRANSPLANT REJECTION [None]
